FAERS Safety Report 14440642 (Version 2)
Quarter: 2018Q1

REPORT INFORMATION
  Report Type: Spontaneous
  Country: CH (occurrence: CH)
  Receive Date: 20180125
  Receipt Date: 20180131
  Transmission Date: 20180509
  Serious: Yes (Death, Hospitalization)
  Sender: FDA-Public Use
  Company Number: CH-PURDUE PHARMA-GBR-2018-0052586

PATIENT
  Age: 59 Year
  Sex: Female

DRUGS (20)
  1. CLEXANE [Concomitant]
     Active Substance: ENOXAPARIN SODIUM
     Dosage: 40 MG, DAILY (0-0-0-1) UNTIL FURTHER NOTICE
     Route: 058
  2. TRANSTEC [Suspect]
     Active Substance: BUPRENORPHINE
     Dosage: 35 MCG, Q1H (1 PLASTER 35MCG/H)
     Route: 062
     Dates: start: 20171209
  3. QUETIAPINE FUMARATE. [Suspect]
     Active Substance: QUETIAPINE FUMARATE
     Indication: DELIRIUM
     Dosage: 1 DF, UNK
     Route: 048
     Dates: start: 20171203, end: 20171219
  4. FORMIC ACID [Concomitant]
     Active Substance: FORMIC ACID
     Route: 061
  5. NICOTINELL [Concomitant]
     Active Substance: NICOTINE
     Dosage: 2 MEDIUM-STRENGTH MATRIX PATCHES 1-0-0
     Route: 062
  6. LYRICA [Suspect]
     Active Substance: PREGABALIN
     Indication: PRODUCT USED FOR UNKNOWN INDICATION
     Dosage: 150 MG, BID (1-0-1)
     Route: 048
     Dates: start: 2017, end: 20171203
  7. PANTOZOL [Suspect]
     Active Substance: PANTOPRAZOLE SODIUM
     Indication: PRODUCT USED FOR UNKNOWN INDICATION
     Dosage: 40 MG, DAILY (1-0-0)
     Route: 048
  8. SURMONTIL [Suspect]
     Active Substance: TRIMIPRAMINE MALEATE
     Indication: PRODUCT USED FOR UNKNOWN INDICATION
     Dosage: 50 MG, DAILY
     Route: 048
     Dates: end: 20171203
  9. SAROTEN [Suspect]
     Active Substance: AMITRIPTYLINE
     Indication: PRODUCT USED FOR UNKNOWN INDICATION
     Dosage: 75 MG, DAILY (0-0-3)
     Route: 048
     Dates: end: 20171203
  10. LAXOBERON [Concomitant]
     Active Substance: SODIUM PICOSULFATE
     Dosage: 20-0-20
     Route: 048
     Dates: end: 20171208
  11. TRANSTEC [Suspect]
     Active Substance: BUPRENORPHINE
     Indication: ANALGESIC THERAPY
     Dosage: 17.5 MCG, Q1H (1/2 PLASTER 35MCG/H))
     Route: 062
     Dates: start: 20171212, end: 20171212
  12. SULFAMETHOXAZOLE [Suspect]
     Active Substance: SULFAMETHOXAZOLE
     Indication: PRODUCT USED FOR UNKNOWN INDICATION
     Dosage: 1 DF, TID (1-1-1)
     Route: 048
     Dates: start: 20171204, end: 20171206
  13. NOVALGIN                           /00169801/ [Concomitant]
     Active Substance: ACETAMINOPHEN\CAFFEINE\PROPYPHENAZONE
     Dosage: 40-40-40-40 UNTIL FURTHER NOTICE
     Route: 048
  14. VI-DE 3 [Concomitant]
     Active Substance: CHOLECALCIFEROL
     Dosage: 8-0-0
     Route: 048
  15. BEPANTHEN                          /00178901/ [Concomitant]
     Active Substance: DEXPANTHENOL
     Dosage: 5 %, PRN
     Route: 061
  16. CHLORHEXIDINE [Concomitant]
     Active Substance: CHLORHEXIDINE
     Dosage: 0.2 %, DAILY
  17. OXYNORM [Suspect]
     Active Substance: OXYCODONE HYDROCHLORIDE
     Indication: ANALGESIC THERAPY
     Dosage: 1 DF, UNK
     Route: 048
     Dates: start: 20171203, end: 20171214
  18. TRANSTEC [Suspect]
     Active Substance: BUPRENORPHINE
     Dosage: 35 MCG, Q1H (1 PLASTER 35MCG/H)
     Route: 062
     Dates: start: 20171203
  19. BRUFEN                             /00109201/ [Suspect]
     Active Substance: IBUPROFEN
     Indication: PRODUCT USED FOR UNKNOWN INDICATION
     Dosage: 400 MG, TID (1-1-1)
     Route: 048
     Dates: start: 2017, end: 20171203
  20. HEMERAN                            /00723701/ [Concomitant]
     Route: 061

REACTIONS (3)
  - Delirium [Recovering/Resolving]
  - Disease progression [Fatal]
  - Drug prescribing error [Recovering/Resolving]

NARRATIVE: CASE EVENT DATE: 20171128
